FAERS Safety Report 20939326 (Version 1)
Quarter: 2022Q2

REPORT INFORMATION
  Report Type: Spontaneous
  Country: None (occurrence: CA)
  Receive Date: 20220609
  Receipt Date: 20220609
  Transmission Date: 20220721
  Serious: Yes (Hospitalization)
  Sender: FDA-Public Use
  Company Number: CA-B.Braun Medical Inc.-2129654

PATIENT
  Age: 54 Year
  Sex: Female

DRUGS (24)
  1. SODIUM CHLORIDE [Suspect]
     Active Substance: SODIUM CHLORIDE
  2. VENTOLIN [Concomitant]
     Active Substance: ALBUTEROL SULFATE
  3. ACYCLOVIR [Suspect]
     Active Substance: ACYCLOVIR
  4. BUDESONIDE AND FORMOTEROL FUMARATE DIHYDRATE [Suspect]
     Active Substance: BUDESONIDE\FORMOTEROL FUMARATE
  5. BUPROPION [Suspect]
     Active Substance: BUPROPION
  6. CLONAZEPAM [Suspect]
     Active Substance: CLONAZEPAM
  7. ELIQUIS [Suspect]
     Active Substance: APIXABAN
  8. ERGOCALCIFEROL [Suspect]
     Active Substance: ERGOCALCIFEROL
  9. ESOMEPRAZOLE. [Suspect]
     Active Substance: ESOMEPRAZOLE MAGNESIUM
  10. DEEPAIR MICRO INTENSIVE MAGIC (HYALURONATE SODIUM) [Suspect]
     Active Substance: HYALURONATE SODIUM
  11. LEVOTHYROXINE [Suspect]
     Active Substance: LEVOTHYROXINE
  12. LIOTHYRONINE SODIUM [Suspect]
     Active Substance: LIOTHYRONINE SODIUM
  13. METOPROLOL [Suspect]
     Active Substance: METOPROLOL
  14. MOMETASONE FUROATE [Suspect]
     Active Substance: MOMETASONE FUROATE
  15. MONTELUKAST [Suspect]
     Active Substance: MONTELUKAST SODIUM
  16. PERINDOPRIL ERBUMINE [Suspect]
     Active Substance: PERINDOPRIL ERBUMINE
  17. PREDNISONE [Suspect]
     Active Substance: PREDNISONE
  18. ALBUTEROL SULFATE [Suspect]
     Active Substance: ALBUTEROL SULFATE
  19. SODIUM BICARBONATE [Suspect]
     Active Substance: SODIUM BICARBONATE
  20. SPIRONOLACTONE [Suspect]
     Active Substance: SPIRONOLACTONE
  21. TRAMADOL HYDROCHLORIDE [Suspect]
     Active Substance: TRAMADOL HYDROCHLORIDE
  22. TRAZODONE [Suspect]
     Active Substance: TRAZODONE HYDROCHLORIDE
  23. VITAMIN B12 [Suspect]
     Active Substance: CYANOCOBALAMIN
  24. VITAMIN C [Suspect]
     Active Substance: ASCORBIC ACID

REACTIONS (20)
  - Asthma [None]
  - Burning sensation [None]
  - Cardiac disorder [None]
  - Carpal tunnel syndrome [None]
  - Dyspnoea [None]
  - Ejection fraction [None]
  - Fibromyalgia [None]
  - Gastrooesophageal reflux disease [None]
  - Headache [None]
  - Hypertension [None]
  - Hypothyroidism [None]
  - Loss of personal independence in daily activities [None]
  - Nephrectomy [None]
  - Polycystic ovaries [None]
  - Renal disorder [None]
  - Rhinitis allergic [None]
  - Sensitisation [None]
  - Sleep apnoea syndrome [None]
  - Therapeutic product effect incomplete [None]
  - Wheezing [None]
